FAERS Safety Report 8812078 (Version 1)
Quarter: 2012Q4

REPORT INFORMATION
  Report Type: Report from Study
  Country: US (occurrence: US)
  Receive Date: 20120927
  Receipt Date: 20120927
  Transmission Date: 20130627
  Serious: Yes (Hospitalization)
  Sender: FDA-Public Use
  Company Number: US-ABBOTT-12P-163-0983458-00

PATIENT
  Age: 46 Year
  Sex: Female
  Weight: 63.56 kg

DRUGS (14)
  1. HUMIRA [Suspect]
     Indication: RHEUMATOID ARTHRITIS
     Dates: start: 201206
  2. HUMIRA [Suspect]
     Indication: CROHN^S DISEASE
     Dates: start: 2008, end: 2009
  3. HUMIRA [Suspect]
     Indication: ANKYLOSING SPONDYLITIS
  4. HUMIRA [Suspect]
     Indication: PSORIASIS
  5. HUMIRA [Suspect]
     Indication: SJOGREN^S SYNDROME
  6. HUMIRA [Suspect]
     Indication: SYSTEMIC LUPUS ERYTHEMATOSUS
  7. COREG [Concomitant]
     Indication: CARDIAC DISORDER
  8. PHENERGAN [Concomitant]
     Indication: VOMITING
  9. MIRALAX [Concomitant]
     Indication: CONSTIPATION
  10. PRILOSEC [Concomitant]
     Indication: GASTROOESOPHAGEAL REFLUX DISEASE
  11. DIAZEPAM [Concomitant]
     Indication: MUSCLE RELAXANT THERAPY
  12. LORTAB [Concomitant]
     Indication: PAIN
  13. VITAMIN D [Concomitant]
     Indication: VITAMIN SUPPLEMENTATION
  14. VITAMIN B 12 [Concomitant]
     Indication: VITAMIN SUPPLEMENTATION

REACTIONS (8)
  - Inflammation [Recovered/Resolved]
  - Migraine [Recovered/Resolved]
  - Rheumatoid arthritis [Not Recovered/Not Resolved]
  - Amnesia [Recovered/Resolved]
  - Confusional state [Recovered/Resolved]
  - Vomiting [Recovered/Resolved]
  - Arthralgia [Not Recovered/Not Resolved]
  - Dyspepsia [Not Recovered/Not Resolved]
